FAERS Safety Report 19398880 (Version 1)
Quarter: 2021Q2

REPORT INFORMATION
  Report Type: Spontaneous
  Country: US (occurrence: US)
  Receive Date: 20210610
  Receipt Date: 20210610
  Transmission Date: 20210717
  Serious: Yes (Other)
  Sender: FDA-Public Use
  Company Number: None

PATIENT
  Age: 4 Year
  Sex: Female

DRUGS (1)
  1. SINGULAIR [Suspect]
     Active Substance: MONTELUKAST SODIUM
     Indication: RHINITIS ALLERGIC
     Dates: start: 20210401, end: 20210610

REACTIONS (5)
  - Mood altered [None]
  - Suicidal ideation [None]
  - Depression [None]
  - Depressed mood [None]
  - Sleep disorder [None]

NARRATIVE: CASE EVENT DATE: 20210601
